FAERS Safety Report 10182687 (Version 1)
Quarter: 2014Q2

REPORT INFORMATION
  Report Type: Spontaneous
  Country: US (occurrence: None)
  Receive Date: 20140519
  Receipt Date: 20140519
  Transmission Date: 20141212
  Serious: Yes (Disabling)
  Sender: FDA-Public Use
  Company Number: None

PATIENT
  Age: 52 Year
  Sex: Female
  Weight: 58.97 kg

DRUGS (1)
  1. BREO ELLIPTA [Suspect]
     Indication: CHRONIC OBSTRUCTIVE PULMONARY DISEASE
     Dosage: 1 PUFF ONCE DAILY INHALATION
     Route: 055
     Dates: start: 20140512, end: 20140514

REACTIONS (2)
  - Drug effect decreased [None]
  - Dyspnoea exertional [None]
